FAERS Safety Report 8041763-6 (Version None)
Quarter: 2011Q4

REPORT INFORMATION
  Report Type: 
  Country: None (occurrence: None)
  Receive Date: 20111202
  Receipt Date: 20110502
  Transmission Date: 20120403
  Serious: Yes (Hospitalization, Other)
  Sender: FDA-Public Use
  Company Number: 2011SP019417

PATIENT
  Age: 36 Year
  Sex: Female
  Weight: 83.9154 kg

DRUGS (2)
  1. SYNTHROID [Concomitant]
  2. NUVARING [Suspect]
     Indication: CONTRACEPTION
     Dates: start: 20060728, end: 20090501

REACTIONS (7)
  - CHEST PAIN [None]
  - ACUTE SINUSITIS [None]
  - OBESITY [None]
  - PALPITATIONS [None]
  - ATELECTASIS [None]
  - PULMONARY EMBOLISM [None]
  - TINEA INFECTION [None]
